FAERS Safety Report 25336860 (Version 2)
Quarter: 2025Q3

REPORT INFORMATION
  Report Type: Spontaneous
  Country: JP (occurrence: JP)
  Receive Date: 20250520
  Receipt Date: 20250708
  Transmission Date: 20251020
  Serious: Yes (Hospitalization)
  Sender: ABBVIE
  Company Number: JP-TAKEDA-2025TJP004574

PATIENT
  Sex: Male

DRUGS (1)
  1. LEUPLIN [Suspect]
     Active Substance: LEUPROLIDE ACETATE
     Indication: Prostate cancer
     Route: 058
     Dates: start: 20250501

REACTIONS (2)
  - Nausea [Recovering/Resolving]
  - Vomiting [Recovering/Resolving]
